FAERS Safety Report 6209285-2 (Version None)
Quarter: 2009Q2

REPORT INFORMATION
  Report Type: 
  Country: None (occurrence: None)
  Receive Date: 20090529
  Receipt Date: 20090526
  Transmission Date: 20091009
  Serious: Yes (Other)
  Sender: FDA-Public Use
  Company Number: US-AMGEN-QUU335228

PATIENT
  Sex: Female

DRUGS (4)
  1. ENBREL [Suspect]
     Indication: PSORIASIS
     Route: 058
     Dates: start: 20080306
  2. EFFEXOR [Concomitant]
  3. LORAZEPAM [Concomitant]
  4. DOXYCYCLINE [Concomitant]

REACTIONS (1)
  - DERMAL CYST [None]
